FAERS Safety Report 4459658-3 (Version None)
Quarter: 2004Q3

REPORT INFORMATION
  Report Type: 
  Country: None (occurrence: None)
  Receive Date: 20040914
  Receipt Date: 20030925
  Transmission Date: 20050211
  Serious: Yes (Death)
  Sender: FDA-Public Use
  Company Number: 20030900061

PATIENT
  Age: 24 Year
  Sex: Female
  Weight: 55 kg

DRUGS (3)
  1. ATIVAN [Suspect]
     Indication: SEDATION
     Dosage: 178 MG DAILY
     Dates: start: 20030907, end: 20030907
  2. ATIVAN [Suspect]
     Indication: SEDATION
     Dosage: 1200 MG DAILY
     Dates: start: 20030923, end: 20030923
  3. ATIVAN [Suspect]
     Indication: SEDATION
     Dosage: 450 MG DAILY
     Dates: start: 20030924, end: 20030924

REACTIONS (1)
  - METABOLIC ACIDOSIS [None]
